FAERS Safety Report 9157369 (Version 1)
Quarter: 2013Q1

REPORT INFORMATION
  Report Type: Spontaneous
  Country: US (occurrence: None)
  Receive Date: 20130204
  Receipt Date: 20130204
  Transmission Date: 20140127
  Serious: Yes (Hospitalization, Other)
  Sender: FDA-Public Use
  Company Number: AUR-APL-2013-01097

PATIENT
  Age: 34 Year
  Sex: Male

DRUGS (5)
  1. LISINOPRIL (LISINOPRIL) [Suspect]
     Indication: PRODUCT USED FOR UNKNOWN INDICATION
     Dosage: ( 5 MG, 1 D), ORAL, -STOPPED
     Route: 048
  2. PHENYTOIN (PHENYTOIN) [Suspect]
     Indication: PRODUCT USED FOR UNKNOWN INDICATION
     Dosage: ORAL, -STOPPED
     Route: 048
  3. LEVETIRACETAM (LEVETIRACETAM) [Concomitant]
  4. DEXAMETHASONE (DEXAMETHASONE) [Concomitant]
  5. ACETAMINOPHEN (PARACETAMOL) [Concomitant]

REACTIONS (3)
  - Drug reaction with eosinophilia and systemic symptoms [None]
  - Angioedema [None]
  - Eosinophilia [None]
